FAERS Safety Report 7730333-2 (Version None)
Quarter: 2011Q3

REPORT INFORMATION
  Report Type: 
  Country: None (occurrence: None)
  Receive Date: 20110906
  Receipt Date: 20110823
  Transmission Date: 20111222
  Serious: Yes (Hospitalization, Other)
  Sender: FDA-Public Use
  Company Number: US-ELI_LILLY_AND_COMPANY-US201009002949

PATIENT
  Sex: Female
  Weight: 69.841 kg

DRUGS (11)
  1. CENTRUM SILVER [Concomitant]
  2. BIOTIN [Concomitant]
  3. FORTEO [Suspect]
     Dosage: 20 UG, DAILY (1/D)
     Route: 065
     Dates: start: 20100301
  4. SYNTHROID [Concomitant]
  5. VITAMIN D [Concomitant]
  6. CALCIUM W/VITAMIN D                /00188401/ [Concomitant]
  7. BISOPROLOL FUMARATE [Concomitant]
  8. ASPIRIN [Concomitant]
     Dosage: 81 MG, QD
  9. ZOLPIDEM [Concomitant]
  10. FORTEO [Suspect]
     Dosage: 20 UG, QD
     Route: 065
  11. FUROSEMIDA                         /00032601/ [Concomitant]

REACTIONS (2)
  - HIP FRACTURE [None]
  - FALL [None]
